FAERS Safety Report 7147945-X (Version None)
Quarter: 2010Q4

REPORT INFORMATION
  Report Type: 
  Country: None (occurrence: None)
  Receive Date: 20101209
  Receipt Date: 20101130
  Transmission Date: 20110411
  Serious: Yes (Other)
  Sender: FDA-Public Use
  Company Number: CA-JNJFOC-20101201411

PATIENT
  Sex: Female
  Weight: 73 kg

DRUGS (9)
  1. REMICADE [Suspect]
     Indication: RHEUMATOID ARTHRITIS
     Route: 042
  2. RANITIDINE [Concomitant]
  3. DIAMICRON [Concomitant]
  4. METOPROLOL [Concomitant]
  5. METFORMIN HYDROCHLORIDE [Concomitant]
  6. AVALIDE [Concomitant]
  7. ASPIRIN [Concomitant]
  8. CALCIUM [Concomitant]
  9. METHOTREXATE [Concomitant]

REACTIONS (1)
  - TRANSIENT ISCHAEMIC ATTACK [None]
